FAERS Safety Report 17103140 (Version 1)
Quarter: 2019Q4

REPORT INFORMATION
  Report Type: Spontaneous
  Country: US (occurrence: US)
  Receive Date: 20191106
  Receipt Date: 20191106
  Transmission Date: 20200122
  Serious: Yes (Death, Hospitalization)
  Sender: FDA-Public Use
  Company Number: None

PATIENT
  Age: 56 Year
  Sex: Female
  Weight: 60.5 kg

DRUGS (1)
  1. CAMPTOSAR [Suspect]
     Active Substance: IRINOTECAN HYDROCHLORIDE
     Dates: end: 20191007

REACTIONS (10)
  - Abdominal pain [None]
  - Lymphocyte count decreased [None]
  - Nausea [None]
  - Ascites [None]
  - Hyporesponsive to stimuli [None]
  - Disease progression [None]
  - Ectropion [None]
  - Somnolence [None]
  - Asthenia [None]
  - Vomiting [None]

NARRATIVE: CASE EVENT DATE: 20191015
